FAERS Safety Report 20564430 (Version 2)
Quarter: 2022Q1

REPORT INFORMATION
  Report Type: Spontaneous
  Country: KW (occurrence: KW)
  Receive Date: 20220308
  Receipt Date: 20220316
  Transmission Date: 20220423
  Serious: Yes (Life-Threatening, Hospitalization, Other)
  Sender: FDA-Public Use
  Company Number: KW-MLMSERVICE-20220224-3395782-1

PATIENT
  Age: 74 Year
  Sex: Male
  Weight: 77 kg

DRUGS (6)
  1. ASPIRIN [Suspect]
     Active Substance: ASPIRIN
     Indication: Acute myocardial infarction
     Dosage: UNK
     Dates: start: 2021, end: 2021
  2. ASPIRIN [Suspect]
     Active Substance: ASPIRIN
     Indication: Angina pectoris
  3. PLAVIX [Suspect]
     Active Substance: CLOPIDOGREL BISULFATE
     Indication: Angina pectoris
     Dates: start: 2021
  4. TICAGRELOR [Suspect]
     Active Substance: TICAGRELOR
     Indication: Angina pectoris
     Dosage: UNK
     Dates: start: 2021, end: 2021
  5. TICAGRELOR [Suspect]
     Active Substance: TICAGRELOR
     Indication: Acute myocardial infarction
  6. NITROGLYCERIN [Concomitant]
     Active Substance: NITROGLYCERIN
     Indication: Chest pain
     Dates: start: 2021

REACTIONS (5)
  - Shock [Recovered/Resolved]
  - Retroperitoneal haemorrhage [Recovering/Resolving]
  - Haematoma [Recovered/Resolved]
  - Haemoglobin decreased [Recovered/Resolved]
  - Respiratory depression [Recovered/Resolved]

NARRATIVE: CASE EVENT DATE: 20210101
